FAERS Safety Report 5353446-1 (Version None)
Quarter: 2007Q2

REPORT INFORMATION
  Report Type: 
  Country: None (occurrence: None)
  Receive Date: 20070612
  Receipt Date: 20070601
  Transmission Date: 20071010
  Serious: Yes (Hospitalization)
  Sender: FDA-Public Use
  Company Number: PHBS2007ZA09222

PATIENT
  Sex: Female

DRUGS (3)
  1. TEGRETOL [Suspect]
     Route: 065
  2. TRILEPTAL [Suspect]
     Route: 065
  3. CLOZAPINE [Suspect]
     Route: 065

REACTIONS (3)
  - BIPOLAR I DISORDER [None]
  - MANIA [None]
  - RASH [None]
